FAERS Safety Report 10956591 (Version 1)
Quarter: 2015Q1

REPORT INFORMATION
  Report Type: Report from Study
  Country: BR (occurrence: BR)
  Receive Date: 20150326
  Receipt Date: 20150326
  Transmission Date: 20150721
  Serious: Yes (Other)
  Sender: FDA-Public Use
  Company Number: BR-ABBVIE-15P-020-1365144-00

PATIENT
  Age: 43 Year
  Sex: Male
  Weight: 74 kg

DRUGS (2)
  1. HUMIRA [Suspect]
     Active Substance: ADALIMUMAB
     Indication: CROHN^S DISEASE
     Route: 058
     Dates: start: 20100101
  2. HUMIRA [Suspect]
     Active Substance: ADALIMUMAB
     Route: 058

REACTIONS (5)
  - Cardiovascular disorder [Recovered/Resolved]
  - Gastritis [Recovering/Resolving]
  - Sneezing [Recovered/Resolved]
  - Weight decreased [Recovering/Resolving]
  - Influenza [Recovered/Resolved]

NARRATIVE: CASE EVENT DATE: 2012
